FAERS Safety Report 12140990 (Version 3)
Quarter: 2016Q2

REPORT INFORMATION
  Report Type: Spontaneous
  Country: JP (occurrence: JP)
  Receive Date: 20160303
  Receipt Date: 20160613
  Transmission Date: 20160815
  Serious: Yes (Hospitalization)
  Sender: FDA-Public Use
  Company Number: JP-ELI_LILLY_AND_COMPANY-JP201602007700

PATIENT
  Age: 15 Year
  Sex: Male

DRUGS (10)
  1. PL [Suspect]
     Active Substance: ACETAMINOPHEN\CAFFEINE\PROMETHAZINE\SALICYLAMIDE
     Indication: NASOPHARYNGITIS
  2. LOXONIN [Suspect]
     Active Substance: LOXOPROFEN SODIUM
     Indication: NASOPHARYNGITIS
  3. COCARL [Suspect]
     Active Substance: ACETAMINOPHEN
     Indication: NASOPHARYNGITIS
  4. LEXIN                              /00052501/ [Suspect]
     Active Substance: CARBAMAZEPINE
     Indication: ANTISOCIAL BEHAVIOUR
     Dosage: UNK
     Route: 048
     Dates: start: 20151120, end: 20151224
  5. RISPERDAL [Suspect]
     Active Substance: RISPERIDONE
     Indication: ANTISOCIAL BEHAVIOUR
     Dosage: UNK
     Route: 048
     Dates: start: 20151106, end: 20160103
  6. PL [Suspect]
     Active Substance: ACETAMINOPHEN\CAFFEINE\PROMETHAZINE\SALICYLAMIDE
     Indication: PYREXIA
     Dosage: UNK
     Route: 048
     Dates: start: 20151220, end: 20151224
  7. ZYPREXA [Suspect]
     Active Substance: OLANZAPINE
     Indication: ANTISOCIAL BEHAVIOUR
     Dosage: UNK
     Route: 048
     Dates: start: 20151120, end: 20151228
  8. GOODMIN [Suspect]
     Active Substance: BROTIZOLAM
     Indication: ANTISOCIAL BEHAVIOUR
     Dosage: UNK
     Route: 048
     Dates: start: 20151120, end: 20151224
  9. LOXONIN [Suspect]
     Active Substance: LOXOPROFEN SODIUM
     Indication: PYREXIA
     Dosage: UNK
     Route: 048
     Dates: start: 20151220, end: 20151224
  10. COCARL [Suspect]
     Active Substance: ACETAMINOPHEN
     Indication: PYREXIA
     Dosage: UNK
     Route: 048
     Dates: start: 20151220, end: 20151224

REACTIONS (4)
  - Diarrhoea [Unknown]
  - Pyrexia [Unknown]
  - Off label use [Recovered/Resolved]
  - Drug reaction with eosinophilia and systemic symptoms [Recovering/Resolving]

NARRATIVE: CASE EVENT DATE: 20151120
